FAERS Safety Report 5338186-7 (Version None)
Quarter: 2007Q2

REPORT INFORMATION
  Report Type: 
  Country: None (occurrence: None)
  Receive Date: 20070530
  Receipt Date: 20070518
  Transmission Date: 20071010
  Serious: Yes (Life-Threatening, Hospitalization, Other)
  Sender: FDA-Public Use
  Company Number: 10835494

PATIENT
  Age: 18 Day
  Sex: Female
  Weight: 1 kg

DRUGS (12)
  1. ZERIT [Suspect]
     Dosage: EXPOSURE DURING GESTATION.
     Route: 064
  2. VIDEX [Suspect]
     Dosage: EXPOSURE DURING GESTATION.
     Route: 064
  3. INVIRASE [Suspect]
     Dosage: EXPOSURE DURING GESTATION.
     Route: 064
  4. NORVIR [Suspect]
     Dosage: EXPOSURE DURING GESTATION.
     Route: 064
  5. RETROVIR [Suspect]
     Dosage: EXPOSURE DURING DELIVERY.
     Route: 064
     Dates: start: 19990702, end: 19990702
  6. RETROVIR [Suspect]
     Indication: PROPHYLAXIS
     Dosage: INITIATED AT 8 MG/KG/DAY, 6 MG/KG/DAY FROM 7/6/99, THEN 1.4 MG/KG TWICE DAILY FROM 7/11/99.
     Route: 042
     Dates: start: 19990702, end: 19990810
  7. RETROVIR [Suspect]
     Route: 048
     Dates: start: 19990707, end: 19990718
  8. BACTRIM [Concomitant]
     Dosage: EXPOSURE DURING GESTATION.
     Route: 064
  9. TRIFLUCAN [Concomitant]
     Dosage: EXPOSURE DURING GESTATION.
     Route: 064
  10. LOXEN [Concomitant]
     Dosage: EXPOSURE DURING GESTATION.
     Route: 064
  11. CELESTENE [Concomitant]
     Dosage: EXPOSURE DURING GESTATION.
     Route: 064
  12. SALBUTAMOL [Concomitant]
     Dosage: EXPOSURE DURING GESTATION.
     Route: 064

REACTIONS (10)
  - ALANINE AMINOTRANSFERASE INCREASED [None]
  - BLOOD CREATININE INCREASED [None]
  - COLECTOMY TOTAL [None]
  - ENTEROCOLITIS [None]
  - ILEOSTOMY [None]
  - NECROTISING COLITIS [None]
  - PREGNANCY [None]
  - PREMATURE BABY [None]
  - SPEECH DISORDER [None]
  - THROMBOCYTHAEMIA [None]
